FAERS Safety Report 5030701-6 (Version None)
Quarter: 2006Q2

REPORT INFORMATION
  Report Type: 
  Country: None (occurrence: None)
  Receive Date: 20060615
  Receipt Date: 20060606
  Transmission Date: 20061013
  Serious: Yes (Hospitalization)
  Sender: FDA-Public Use
  Company Number: 2006072507

PATIENT
  Age: 68 Year
  Sex: Male

DRUGS (9)
  1. TAHOR (ATORVASTATIN) [Suspect]
     Indication: ILL-DEFINED DISORDER
     Dates: start: 20060213, end: 20060220
  2. COVERSYL (PERINDOPRIL) [Suspect]
     Indication: ILL-DEFINED DISORDER
     Dates: start: 20060213, end: 20060220
  3. LOVENOX [Suspect]
     Indication: ILL-DEFINED DISORDER
     Dates: start: 20060213, end: 20060217
  4. CARVEDILOL [Suspect]
     Indication: ILL-DEFINED DISORDER
     Dates: start: 20060213, end: 20060220
  5. VISIPAQUE (IODIXANOL, TROMETAMOL) [Concomitant]
  6. PLAVIX [Concomitant]
  7. KARDEGIC (ACETYLSALICYLATE LYSINE) [Concomitant]
  8. INTEGRILIN [Concomitant]
  9. VIRLIX (CETIRIZINE) [Concomitant]

REACTIONS (3)
  - EOSINOPHILIA [None]
  - PRURITUS [None]
  - RASH MACULO-PAPULAR [None]
